FAERS Safety Report 5583839-9 (Version None)
Quarter: 2008Q1

REPORT INFORMATION
  Report Type: 
  Country: None (occurrence: None)
  Receive Date: 20080108
  Receipt Date: 20080103
  Transmission Date: 20080703
  Serious: Yes (Hospitalization, Other)
  Sender: FDA-Public Use
  Company Number: PHEH2008US00474

PATIENT
  Age: 68 Year
  Sex: Male
  Weight: 103 kg

DRUGS (13)
  1. LOPRESSOR [Suspect]
     Indication: HYPERTENSION
     Dosage: 50 MG, BID
     Route: 048
     Dates: start: 20021001, end: 20070207
  2. EPTIFIBATIDE [Suspect]
     Indication: ACUTE CORONARY SYNDROME
     Dosage: 9 ML, ONCE2SDO
     Route: 042
     Dates: start: 20060109, end: 20060109
  3. EPTIFIBATIDE [Suspect]
     Dosage: 16 ML, QH
     Route: 042
     Dates: start: 20060109, end: 20060110
  4. AMIODARONE HCL [Suspect]
     Indication: ATRIAL FIBRILLATION
     Dosage: 200 MG, QD
     Route: 048
     Dates: start: 20060101, end: 20070207
  5. METFORMIN HCL [Suspect]
     Indication: DIABETES MELLITUS
     Dosage: 850 MG, BID
     Route: 048
     Dates: start: 20040201, end: 20070207
  6. OMEPRAZOLE [Concomitant]
     Dosage: UNK, UNK
  7. ASPIRIN [Concomitant]
     Dosage: UNK, UNK
  8. HEPARIN [Concomitant]
     Dosage: UNK, UNK
  9. CLONIDINE [Concomitant]
     Dosage: UNK, UNK
     Dates: start: 20050114, end: 20070207
  10. FUROSEMIDE [Concomitant]
     Dosage: UNK, UNK
     Dates: start: 20041203, end: 20070207
  11. SIMVASTATIN [Concomitant]
     Dosage: UNK, UNK
     Dates: start: 20060101
  12. FELODIPINE [Concomitant]
     Dosage: UNK, UNK
     Dates: start: 19940319
  13. POTASSIUM CHLORIDE [Concomitant]
     Dosage: UNK, UNK
     Dates: end: 20060207

REACTIONS (14)
  - ACUTE CORONARY SYNDROME [None]
  - ANGINA PECTORIS [None]
  - ANGINA UNSTABLE [None]
  - ARTERIOGRAM CORONARY ABNORMAL [None]
  - BLOOD CREATININE INCREASED [None]
  - BRADYCARDIA [None]
  - CORONARY ARTERY BYPASS [None]
  - CORONARY ARTERY DISEASE [None]
  - DIZZINESS [None]
  - ECHOCARDIOGRAM ABNORMAL [None]
  - ELECTROCARDIOGRAM ABNORMAL [None]
  - PERICARDIAL EFFUSION [None]
  - PERICARDIAL EXCISION [None]
  - RENAL FAILURE [None]
